FAERS Safety Report 7836657 (Version 3)
Quarter: 2012Q4

REPORT INFORMATION
  Report Type: 
  Country: US (occurrence: US)
  Receive Date: 20110302
  Receipt Date: 20120904
  Transmission Date: 20130627
  Serious: Yes (Other)
  Sender: FDA-Public Use
  Company Number: US-BAYER-2011-015813

PATIENT
  Age: 19 Year
  Sex: Female
  Weight: 104 kg

DRUGS (1)
  1. MIRENA [Suspect]
     Indication: CONTRACEPTION
     Dosage: Daily dose 20 mcg/24hr
     Route: 015
     Dates: start: 20091218, end: 20110121

REACTIONS (2)
  - Pregnancy with contraceptive device [None]
  - Caesarean section [None]
